FAERS Safety Report 17246823 (Version 4)
Quarter: 2020Q2

REPORT INFORMATION
  Report Type: Spontaneous
  Country: US (occurrence: US)
  Receive Date: 20200108
  Receipt Date: 20200604
  Transmission Date: 20200713
  Serious: No
  Sender: FDA-Public Use
  Company Number: US-PFIZER INC-2016505756

PATIENT
  Age: 55 Year
  Sex: Female
  Weight: 81.65 kg

DRUGS (4)
  1. SOMAVERT [Suspect]
     Active Substance: PEGVISOMANT
     Indication: ACROMEGALY
     Dosage: 35 MG, UNK (SOMAVERT 15 MG AND SOMAVERT 20 MG)
     Dates: start: 20150126
  2. SOMAVERT [Suspect]
     Active Substance: PEGVISOMANT
     Indication: GIGANTISM
     Dosage: 35 MG, 1X/DAY (7 DAYS/WK; 15MG AND 20MG INJECTED ONCE A DAY)
     Dates: start: 20150127
  3. SOMAVERT [Suspect]
     Active Substance: PEGVISOMANT
     Dosage: 35 MG, DAILY (15MG AND A 20MG DAILY)
     Dates: start: 2005
  4. SOMAVERT [Suspect]
     Active Substance: PEGVISOMANT
     Dosage: 35 MG, DAILY (SOMAVERT  DOSING OF 35MG 7X A WEEK)

REACTIONS (2)
  - Prescribed overdose [Unknown]
  - Constipation [Unknown]

NARRATIVE: CASE EVENT DATE: 2005
